FAERS Safety Report 10669917 (Version 1)
Quarter: 2014Q4

REPORT INFORMATION
  Report Type: Spontaneous
  Country: US (occurrence: US)
  Receive Date: 20141222
  Receipt Date: 20141222
  Transmission Date: 20150529
  Serious: Yes (Other)
  Sender: FDA-Public Use
  Company Number: US-ROCHE-1509335

PATIENT
  Sex: Female

DRUGS (1)
  1. TAMIFLU [Suspect]
     Active Substance: OSELTAMIVIR PHOSPHATE
     Indication: INFLUENZA
     Route: 065

REACTIONS (8)
  - Nervousness [Recovered/Resolved]
  - Nasal congestion [Recovering/Resolving]
  - Face injury [Recovered/Resolved]
  - Vomiting [Recovered/Resolved]
  - Mouth injury [Recovered/Resolved]
  - Aggression [Recovered/Resolved]
  - Hallucination [Recovered/Resolved]
  - Pyrexia [Recovered/Resolved]
